FAERS Safety Report 10400179 (Version 2)
Quarter: 2014Q3

REPORT INFORMATION
  Report Type: Spontaneous
  Country: US (occurrence: US)
  Receive Date: 20140821
  Receipt Date: 20140821
  Transmission Date: 20150326
  Serious: Yes (Other)
  Sender: FDA-Public Use
  Company Number: US-PFIZER INC-2014152407

PATIENT
  Age: 4 Year
  Sex: Female
  Weight: 18.14 kg

DRUGS (5)
  1. KETOCONAZOLE. [Concomitant]
     Active Substance: KETOCONAZOLE
     Dosage: UNK
  2. SELENIUM SULFIDE. [Suspect]
     Active Substance: SELENIUM SULFIDE
     Indication: ALTERNARIA INFECTION
     Dosage: UNK
     Dates: start: 20140616, end: 20140701
  3. SELENIUM SULFIDE. [Suspect]
     Active Substance: SELENIUM SULFIDE
     Indication: FUNGAL INFECTION
  4. VFEND [Suspect]
     Active Substance: VORICONAZOLE
     Indication: FUNGAL INFECTION
  5. VFEND [Suspect]
     Active Substance: VORICONAZOLE
     Indication: ALTERNARIA INFECTION
     Dosage: UNK

REACTIONS (6)
  - Stevens-Johnson syndrome [Recovering/Resolving]
  - Skin exfoliation [Recovering/Resolving]
  - Lip swelling [Recovering/Resolving]
  - Rash [Recovering/Resolving]
  - Off label use [Unknown]
  - Lip pain [Recovering/Resolving]
